FAERS Safety Report 15556489 (Version 1)
Quarter: 2018Q4

REPORT INFORMATION
  Report Type: Spontaneous
  Country: US (occurrence: US)
  Receive Date: 20181026
  Receipt Date: 20181026
  Transmission Date: 20190205
  Serious: Yes (Other)
  Sender: FDA-Public Use
  Company Number: US-MOBERGPHARMA-2018-US-017814

PATIENT
  Age: 83 Year
  Sex: Male
  Weight: 92.53 kg

DRUGS (1)
  1. DERMOPLAST PAIN RELIEVING [Suspect]
     Active Substance: BENZOCAINE\MENTHOL
     Indication: APHTHOUS ULCER
     Dosage: AS NEEDED
     Route: 048
     Dates: start: 20180913, end: 20180915

REACTIONS (4)
  - Gingivitis [Unknown]
  - Swelling face [Unknown]
  - Tooth infection [Unknown]
  - Intentional product misuse [Unknown]

NARRATIVE: CASE EVENT DATE: 20180913
